FAERS Safety Report 5632137-3 (Version None)
Quarter: 2008Q1

REPORT INFORMATION
  Report Type: 
  Country: None (occurrence: None)
  Receive Date: 20080220
  Receipt Date: 20080213
  Transmission Date: 20080703
  Serious: Yes (Other)
  Sender: FDA-Public Use
  Company Number: US-MERCK-0704USA01103

PATIENT
  Age: 54 Year
  Sex: Female

DRUGS (5)
  1. FOSAMAX [Suspect]
     Indication: OSTEOPOROSIS
     Route: 048
     Dates: start: 19990101
  2. FOSAMAX [Suspect]
     Route: 048
     Dates: start: 20010101, end: 20060112
  3. HYDROCODONE BITARTRATE [Concomitant]
     Indication: PAIN MANAGEMENT
     Route: 065
  4. AMOXICILLIN [Concomitant]
     Route: 065
  5. PENICILLIN (UNSPECIFIED) [Concomitant]
     Route: 065

REACTIONS (18)
  - ACTINIC KERATOSIS [None]
  - ANXIETY [None]
  - BACK INJURY [None]
  - DEPRESSION [None]
  - FUNGAL INFECTION [None]
  - INCREASED TENDENCY TO BRUISE [None]
  - INTERVERTEBRAL DISC DISORDER [None]
  - INTERVERTEBRAL DISC PROTRUSION [None]
  - MALIGNANT MELANOMA [None]
  - ONYCHOMYCOSIS [None]
  - OSTEOMYELITIS [None]
  - OSTEOMYELITIS CHRONIC [None]
  - OSTEONECROSIS [None]
  - SEBORRHOEIC KERATOSIS [None]
  - SQUAMOUS CELL CARCINOMA OF SKIN [None]
  - STAPHYLOCOCCAL INFECTION [None]
  - TOOTH FRACTURE [None]
  - WOUND DEHISCENCE [None]
